FAERS Safety Report 5091336-2 (Version None)
Quarter: 2006Q3

REPORT INFORMATION
  Report Type: 
  Country: None (occurrence: None)
  Receive Date: 20060829
  Receipt Date: 20060131
  Transmission Date: 20061208
  Serious: No
  Sender: FDA-Public Use
  Company Number: US-GLAXOSMITHKLINE-A0591721A

PATIENT
  Sex: Female

DRUGS (6)
  1. BECONASE [Suspect]
     Dosage: 1SPR TWICE PER DAY
     Route: 045
     Dates: start: 19900101
  2. CLONAZEPAM [Concomitant]
  3. TOPROL-XL [Concomitant]
  4. ADVAIR DISKUS 100/50 [Concomitant]
  5. DIOVAN HCT [Concomitant]
  6. ZYRTEC [Concomitant]

REACTIONS (1)
  - CHRONIC SINUSITIS [None]
